FAERS Safety Report 8506200-3 (Version None)
Quarter: 2012Q3

REPORT INFORMATION
  Report Type: 
  Country: None (occurrence: None)
  Receive Date: 20120702
  Receipt Date: 20120619
  Transmission Date: 20120928
  Serious: Yes (Other)
  Sender: FDA-Public Use
  Company Number: DSA_58116_2012

PATIENT
  Sex: Female

DRUGS (4)
  1. FLUOROURACIL [Suspect]
     Indication: BREAST CANCER
     Dosage: (500 MG/M2 INTRAVENOUS (NOT OTHERWISE SPECIFIED)
     Route: 042
  2. TAMOXIFEN CITRATE [Suspect]
     Indication: BREAST CANCER
     Dosage: (DF (DAILY))
  3. DOXORUBICIN HCL [Suspect]
     Indication: BREAST CANCER
     Dosage: (30 MG/M2 INTRAVENOUS (NOT OTHERWISE SPECIFIED))
     Route: 042
  4. CYCLOPHOSPHAMIDE [Suspect]
     Indication: BREAST CANCER
     Dosage: (100 MG/M2 ORAL)
     Route: 048

REACTIONS (2)
  - VOMITING [None]
  - TOXICITY TO VARIOUS AGENTS [None]
